FAERS Safety Report 6713216-6 (Version None)
Quarter: 2010Q2

REPORT INFORMATION
  Report Type: 
  Country: None (occurrence: None)
  Receive Date: 20100505
  Receipt Date: 20100505
  Transmission Date: 20101027
  Serious: Yes (Other)
  Sender: FDA-Public Use
  Company Number: None

PATIENT
  Age: 36 Year
  Sex: Female
  Weight: 52.1637 kg

DRUGS (1)
  1. BENADRYL [Suspect]
     Indication: SEASONAL ALLERGY
     Dosage: 1-2 TSP 1 TIME AT NIGHT PO
     Route: 048
     Dates: start: 20100301, end: 20100505

REACTIONS (3)
  - FEAR [None]
  - PAIN [None]
  - PRODUCT QUALITY ISSUE [None]
